FAERS Safety Report 9606221 (Version 1)
Quarter: 2013Q4

REPORT INFORMATION
  Report Type: Spontaneous
  Country: US (occurrence: US)
  Receive Date: 20131008
  Receipt Date: 20131008
  Transmission Date: 20140711
  Serious: No
  Sender: FDA-Public Use
  Company Number: US-AMGEN-USASP2013046445

PATIENT
  Age: 85 Year
  Sex: Female

DRUGS (8)
  1. PROLIA [Suspect]
     Indication: PRODUCT USED FOR UNKNOWN INDICATION
  2. TOPROL [Concomitant]
  3. NORVASC [Concomitant]
  4. ASPIRIN [Concomitant]
  5. LIPITOR [Concomitant]
  6. CALCIUM [Concomitant]
  7. VITAMIN D                          /00107901/ [Concomitant]
  8. FISH OIL [Concomitant]

REACTIONS (2)
  - Dental caries [Unknown]
  - Tooth disorder [Unknown]
